FAERS Safety Report 14007349 (Version 1)
Quarter: 2017Q3

REPORT INFORMATION
  Report Type: Spontaneous
  Country: US (occurrence: US)
  Receive Date: 20170925
  Receipt Date: 20170925
  Transmission Date: 20171128
  Serious: Yes (Hospitalization, Other)
  Sender: FDA-Public Use
  Company Number: US-AUROBINDO-AUR-APL-2017-40547

PATIENT
  Age: 22 Year
  Sex: Female

DRUGS (1)
  1. DIPHENHYDRAMINE. [Suspect]
     Active Substance: DIPHENHYDRAMINE
     Indication: PRODUCT USED FOR UNKNOWN INDICATION
     Dosage: 160 DF, UNK
     Route: 065

REACTIONS (5)
  - Coma [Recovered/Resolved]
  - Pupil fixed [Recovered/Resolved]
  - Cardiac arrest [Recovered/Resolved]
  - Compartment syndrome [Recovered/Resolved]
  - Intentional overdose [Recovered/Resolved]
